FAERS Safety Report 21974109 (Version 1)
Quarter: 2023Q1

REPORT INFORMATION
  Report Type: Spontaneous
  Country: ID (occurrence: ID)
  Receive Date: 20230209
  Receipt Date: 20230209
  Transmission Date: 20230418
  Serious: Yes (Death)
  Sender: FDA-Public Use
  Company Number: ID-BoehringerIngelheim-2023-BI-216812

PATIENT
  Sex: Male

DRUGS (1)
  1. ALTEPLASE [Suspect]
     Active Substance: ALTEPLASE
     Indication: Product used for unknown indication
     Route: 065

REACTIONS (1)
  - Death [Fatal]

NARRATIVE: CASE EVENT DATE: 20230205
